FAERS Safety Report 10108796 (Version 1)
Quarter: 2014Q2

REPORT INFORMATION
  Report Type: Spontaneous
  Country: US (occurrence: US)
  Receive Date: 20140425
  Receipt Date: 20140425
  Transmission Date: 20141212
  Serious: Yes (Other)
  Sender: FDA-Public Use
  Company Number: US-ASTRAZENECA-2014SE27183

PATIENT
  Sex: 0

DRUGS (1)
  1. ZOLADEX [Suspect]
     Dosage: 10.8 UNK
     Route: 058
     Dates: start: 20140118

REACTIONS (1)
  - Injection site mass [Unknown]
